FAERS Safety Report 14841679 (Version 2)
Quarter: 2018Q2

REPORT INFORMATION
  Report Type: Report from Study
  Country: BE (occurrence: BE)
  Receive Date: 20180503
  Receipt Date: 20180515
  Transmission Date: 20180711
  Serious: Yes (Other)
  Sender: FDA-Public Use
  Company Number: BE-SA-2018SA122347

PATIENT
  Age: 34 Year
  Sex: Female

DRUGS (3)
  1. HIZENTRA [Concomitant]
     Active Substance: HUMAN IMMUNOGLOBULIN G
     Route: 065
  2. FURADANTINE [Concomitant]
     Active Substance: NITROFURANTOIN
     Route: 065
  3. LEMTRADA [Suspect]
     Active Substance: ALEMTUZUMAB
     Route: 041

REACTIONS (5)
  - Large intestine operation [Unknown]
  - Sinusitis [Recovering/Resolving]
  - Wound [Unknown]
  - Endometriosis [Recovering/Resolving]
  - Stent removal [Unknown]

NARRATIVE: CASE EVENT DATE: 201803
